FAERS Safety Report 24443515 (Version 2)
Quarter: 2024Q4

REPORT INFORMATION
  Report Type: Report from Study
  Country: US (occurrence: US)
  Receive Date: 20241016
  Receipt Date: 20241017
  Transmission Date: 20250114
  Serious: No
  Sender: ROCHE
  Company Number: US-ROCHE-1980822

PATIENT
  Age: 75 Year
  Sex: Male

DRUGS (38)
  1. RITUXAN [Suspect]
     Active Substance: RITUXIMAB
     Indication: Nephritic syndrome
     Dosage: MOST RECENT DOSE ON 11/AUG/2017, 26/AUG/2017 AND 05/JAN/2018.?DAY 1 AND 15
     Route: 042
  2. RITUXAN [Suspect]
     Active Substance: RITUXIMAB
     Indication: Sarcoidosis
     Route: 042
     Dates: start: 20180105
  3. RITUXAN [Suspect]
     Active Substance: RITUXIMAB
     Indication: Glomerulonephritis membranous
  4. RITUXAN [Suspect]
     Active Substance: RITUXIMAB
     Indication: Pulmonary sarcoidosis
  5. RITUXAN [Suspect]
     Active Substance: RITUXIMAB
     Indication: Sarcoidosis of lymph node
  6. CELLCEPT [Suspect]
     Active Substance: MYCOPHENOLATE MOFETIL
     Indication: Nephritic syndrome
     Route: 065
  7. CELLCEPT [Suspect]
     Active Substance: MYCOPHENOLATE MOFETIL
     Indication: Sarcoidosis
  8. CELLCEPT [Suspect]
     Active Substance: MYCOPHENOLATE MOFETIL
     Indication: Glomerulonephritis membranous
  9. CELLCEPT [Suspect]
     Active Substance: MYCOPHENOLATE MOFETIL
     Indication: Pulmonary sarcoidosis
  10. CELLCEPT [Suspect]
     Active Substance: MYCOPHENOLATE MOFETIL
     Indication: Sarcoidosis of lymph node
  11. ACETAMINOPHEN [Concomitant]
     Active Substance: ACETAMINOPHEN
     Dosage: MOST RECENT DOSE ON 11/AUG/2017, 26/AUG/2017 AND 05/JAN/2018
     Route: 048
  12. DIPHENHYDRAMINE [Concomitant]
     Active Substance: DIPHENHYDRAMINE
     Dosage: MOST RECENT DOSE ON 11/AUG/2017, 26/AUG/2017 AND 05/JAN/2018
     Route: 048
  13. METHYLPREDNISOLONE SODIUM SUCCINATE [Concomitant]
     Active Substance: METHYLPREDNISOLONE SODIUM SUCCINATE
     Dosage: MOST RECENT DOSE ON 11/AUG/2017, 26/AUG/2017 AND 05/JAN/2018.
  14. SOLU-MEDROL [Concomitant]
     Active Substance: METHYLPREDNISOLONE SODIUM SUCCINATE
     Route: 042
  15. ALBUTEROL [Concomitant]
     Active Substance: ALBUTEROL
  16. ALLOPURINOL [Concomitant]
     Active Substance: ALLOPURINOL
  17. ASCORBIC ACID [Concomitant]
     Active Substance: ASCORBIC ACID
  18. BUMEX [Concomitant]
     Active Substance: BUMETANIDE
  19. CHOLECALCIFEROL [Concomitant]
     Active Substance: CHOLECALCIFEROL
  20. LOSARTAN [Concomitant]
     Active Substance: LOSARTAN
  21. METOPROLOL [Concomitant]
     Active Substance: METOPROLOL
  22. NITROSTAT [Concomitant]
     Active Substance: NITROGLYCERIN
  23. ROSUVASTATIN [Concomitant]
     Active Substance: ROSUVASTATIN
  24. SULFAMETHOXAZOLE [Concomitant]
     Active Substance: SULFAMETHOXAZOLE
  25. TAMSULOSIN [Concomitant]
     Active Substance: TAMSULOSIN
  26. ELIQUIS [Concomitant]
     Active Substance: APIXABAN
     Route: 048
  27. ASPIRIN [Concomitant]
     Active Substance: ASPIRIN
     Route: 048
  28. VITAMIN D3 [Concomitant]
     Active Substance: CHOLECALCIFEROL
     Dosage: 1000 UNIT
  29. FARXIGA [Concomitant]
     Active Substance: DAPAGLIFLOZIN PROPANEDIOL
     Route: 048
  30. LIDEX [Concomitant]
     Active Substance: FLUOCINONIDE
  31. LASIX [Concomitant]
     Active Substance: FUROSEMIDE
     Route: 048
  32. IMDUR [Concomitant]
     Active Substance: ISOSORBIDE MONONITRATE
     Route: 048
  33. GLUCOPHAGE [Concomitant]
     Active Substance: METFORMIN HYDROCHLORIDE
     Route: 048
  34. TOPROL XL [Concomitant]
     Active Substance: METOPROLOL SUCCINATE
     Route: 048
  35. NITROSTAT [Concomitant]
     Active Substance: NITROGLYCERIN
  36. CRESTOR [Concomitant]
     Active Substance: ROSUVASTATIN CALCIUM
     Route: 048
  37. BACTRIM [Concomitant]
     Active Substance: SULFAMETHOXAZOLE\TRIMETHOPRIM
     Route: 048
  38. FLOMAX [Concomitant]
     Active Substance: TAMSULOSIN HYDROCHLORIDE
     Route: 048

REACTIONS (3)
  - Off label use [Unknown]
  - No adverse event [Unknown]
  - Off label use [Unknown]
